FAERS Safety Report 11517210 (Version 1)
Quarter: 2015Q3

REPORT INFORMATION
  Report Type: Spontaneous
  Country: US (occurrence: None)
  Receive Date: 20150916
  Receipt Date: 20150916
  Transmission Date: 20151125
  Serious: Yes (Other)
  Sender: FDA-Public Use
  Company Number: None

PATIENT
  Age: 54 Year
  Sex: Female
  Weight: 113.4 kg

DRUGS (6)
  1. WELLBURTIN SEASONALE [Concomitant]
  2. ADVIL [Concomitant]
     Active Substance: IBUPROFEN
  3. ANTIHISTAMINES DECONGESTANT EXPECTORANT [Concomitant]
  4. ZOLOFT [Concomitant]
     Active Substance: SERTRALINE HYDROCHLORIDE
  5. TYLENOL [Concomitant]
     Active Substance: ACETAMINOPHEN
  6. LEVOFLOXACIN. [Suspect]
     Active Substance: LEVOFLOXACIN
     Indication: SINUSITIS
     Route: 048
     Dates: start: 20150812, end: 20150912

REACTIONS (4)
  - Swelling [None]
  - Sleep disorder [None]
  - Tendon pain [None]
  - Burning sensation [None]

NARRATIVE: CASE EVENT DATE: 20150912
